FAERS Safety Report 9193910 (Version 3)
Quarter: 2013Q3

REPORT INFORMATION
  Report Type: Spontaneous
  Country: US (occurrence: US)
  Receive Date: 20130327
  Receipt Date: 20130711
  Transmission Date: 20140515
  Serious: Yes (Hospitalization)
  Sender: FDA-Public Use
  Company Number: US-BAYER-2013-037969

PATIENT
  Age: 62 Year
  Sex: Female
  Weight: 83 kg

DRUGS (19)
  1. BETASERON [Suspect]
     Indication: MULTIPLE SCLEROSIS
     Dosage: 1 ML, QOD
     Route: 058
     Dates: start: 2000
  2. BETASERON [Suspect]
     Indication: MULTIPLE SCLEROSIS
     Dosage: 0.3 MG, QOD
     Route: 058
  3. OMEPRAZOLE [Concomitant]
     Indication: GASTROOESOPHAGEAL REFLUX DISEASE
     Dosage: 20 MG, QD
  4. SINGULAIR [Concomitant]
     Indication: ASTHMA
     Dosage: 10 MG, QD
  5. ATORVASTATIN [Concomitant]
     Indication: BLOOD CHOLESTEROL ABNORMAL
     Dosage: 80 MG, QD
  6. LEVOTHYROXINE [Concomitant]
     Indication: BLOOD THYROID STIMULATING HORMONE DECREASED
     Dosage: 112 ?G, QD
  7. CYMBALTA [Concomitant]
     Indication: ANALGESIC THERAPY
     Dosage: 90 MG, QD
  8. CYMBALTA [Concomitant]
     Indication: DEPRESSION
  9. DIOVAN HCT [Concomitant]
     Indication: HYPERTENSION
     Dosage: 80/12.5 MG
  10. ADVAIR [Concomitant]
     Dosage: 250/50, BID
     Route: 055
  11. TRAMADOL [Concomitant]
     Indication: ANALGESIC THERAPY
     Dosage: 50 MG, TID
  12. NALTREXONE [Concomitant]
     Indication: ANALGESIC THERAPY
     Dosage: 1 DF, HS
  13. NABUMETONE [Concomitant]
     Indication: ARTHRITIS
     Dosage: 750 MG, BID
  14. METANX [Concomitant]
     Indication: NEUROPATHY PERIPHERAL
     Dosage: 1 DF, QD
  15. METOPROLOL RETARD [Concomitant]
     Indication: PALPITATIONS
     Dosage: 50 MG, QD
  16. PLAVIX [Concomitant]
     Indication: CARDIAC DISORDER
     Dosage: 75 MG, QD
  17. RISPERIDONE [Concomitant]
     Indication: SLEEP DISORDER THERAPY
     Dosage: 1 MG, HS
  18. BAYER ASPIRIN REGIMEN ADULT LOW STRENGTH [Concomitant]
     Dosage: 81 MG, QD
  19. LIDODERM [Concomitant]
     Indication: ANALGESIC THERAPY
     Dosage: UNK UNK, PRN
     Route: 062

REACTIONS (2)
  - Myocardial infarction [Recovering/Resolving]
  - Neck pain [Recovering/Resolving]
